FAERS Safety Report 25475324 (Version 1)
Quarter: 2025Q2

REPORT INFORMATION
  Report Type: Spontaneous
  Country: ES (occurrence: ES)
  Receive Date: 20250624
  Receipt Date: 20250624
  Transmission Date: 20250717
  Serious: Yes (Hospitalization, Other)
  Sender: SANOFI AVENTIS
  Company Number: ES-DialogSolutions-SAAVPROD-PI786915-C1

PATIENT
  Age: 37 Year
  Sex: Male

DRUGS (17)
  1. RIFAMPIN [Suspect]
     Active Substance: RIFAMPIN
     Indication: Intestinal tuberculosis
  2. RIFAMPIN [Suspect]
     Active Substance: RIFAMPIN
     Indication: Disseminated tuberculosis
  3. RIFAMPIN [Suspect]
     Active Substance: RIFAMPIN
     Indication: Lymph node tuberculosis
  4. ISONIAZID [Suspect]
     Active Substance: ISONIAZID
     Indication: Intestinal tuberculosis
  5. ISONIAZID [Suspect]
     Active Substance: ISONIAZID
     Indication: Disseminated tuberculosis
  6. ISONIAZID [Suspect]
     Active Substance: ISONIAZID
     Indication: Lymph node tuberculosis
  7. PYRAZINAMIDE [Suspect]
     Active Substance: PYRAZINAMIDE
     Indication: Intestinal tuberculosis
  8. PYRAZINAMIDE [Suspect]
     Active Substance: PYRAZINAMIDE
     Indication: Disseminated tuberculosis
  9. PYRAZINAMIDE [Suspect]
     Active Substance: PYRAZINAMIDE
     Indication: Lymph node tuberculosis
  10. ETHAMBUTOL [Suspect]
     Active Substance: ETHAMBUTOL HYDROCHLORIDE
     Indication: Intestinal tuberculosis
  11. ETHAMBUTOL [Suspect]
     Active Substance: ETHAMBUTOL HYDROCHLORIDE
     Indication: Disseminated tuberculosis
  12. ETHAMBUTOL [Suspect]
     Active Substance: ETHAMBUTOL HYDROCHLORIDE
     Indication: Lymph node tuberculosis
  13. ZIDOVUDINE [Concomitant]
     Active Substance: ZIDOVUDINE
     Indication: HIV infection WHO clinical stage III
     Dosage: 250 MG, Q12H
  14. LAMIVUDINE [Concomitant]
     Active Substance: LAMIVUDINE
     Indication: HIV infection WHO clinical stage III
     Dosage: 150 MG, Q12H
  15. EFAVIRENZ [Concomitant]
     Active Substance: EFAVIRENZ
     Indication: HIV infection WHO clinical stage III
     Dosage: 600 MG, QD (200 (600 MG EVERY 24 H))
  16. PAROMOMYCIN [Concomitant]
     Active Substance: PAROMOMYCIN
     Indication: Cryptosporidiosis infection
  17. AZITHROMYCIN [Concomitant]
     Active Substance: AZITHROMYCIN
     Indication: Cryptosporidiosis infection

REACTIONS (12)
  - Paradoxical drug reaction [Recovered/Resolved]
  - Lymphadenopathy [Recovered/Resolved]
  - Erythema [Recovered/Resolved]
  - Skin warm [Recovered/Resolved]
  - Necrotic lymphadenopathy [Recovered/Resolved]
  - Lymphadenopathy mediastinal [Recovered/Resolved]
  - Hilar lymphadenopathy [Recovered/Resolved]
  - Lung opacity [Recovered/Resolved]
  - Splenomegaly [Recovered/Resolved]
  - Abscess [Recovered/Resolved]
  - Hepatomegaly [Recovered/Resolved]
  - Lymph node tuberculosis [Recovered/Resolved]
